FAERS Safety Report 12977779 (Version 1)
Quarter: 2016Q4

REPORT INFORMATION
  Report Type: Report from Study
  Country: ZA (occurrence: ZA)
  Receive Date: 20161128
  Receipt Date: 20161128
  Transmission Date: 20170207
  Serious: Yes (Death, Other)
  Sender: FDA-Public Use
  Company Number: ZA-ROCHE-1810268

PATIENT
  Sex: Female
  Weight: 29 kg

DRUGS (14)
  1. RITUXIMAB [Suspect]
     Active Substance: RITUXIMAB
     Indication: NON-HODGKIN^S LYMPHOMA
     Dosage: TOTAL OF 10 CYCLES RECEIVED BY THE TIME OF EVENT ONSET
     Route: 042
     Dates: start: 20151023, end: 20160712
  2. ADRIAMYCIN [Suspect]
     Active Substance: DOXORUBICIN HYDROCHLORIDE
     Indication: NON-HODGKIN^S LYMPHOMA
     Dosage: TOTAL OF 10 CYCLES RECEIVED BY THE TIME OF EVENT ONSET
     Route: 042
     Dates: start: 20151023, end: 20160712
  3. ALLOPURINOL. [Concomitant]
     Active Substance: ALLOPURINOL
     Route: 048
     Dates: start: 20160712
  4. SLOW K [Concomitant]
     Active Substance: POTASSIUM CHLORIDE
     Dosage: 2 TABLETS BD ORALLY
     Route: 050
     Dates: start: 20160712, end: 20160726
  5. FLAGYL [Concomitant]
     Active Substance: METRONIDAZOLE\METRONIDAZOLE HYDROCHLORIDE
     Dosage: TDS ORALLY FOR 5 DAYS
     Route: 048
     Dates: start: 20160712, end: 20160717
  6. AMOXIL [Concomitant]
     Active Substance: AMOXICILLIN
     Dosage: TDS ORALLY FOR 5 DAYS
     Route: 048
     Dates: start: 20160712, end: 20160717
  7. PREDNISONE. [Suspect]
     Active Substance: PREDNISONE
     Indication: NON-HODGKIN^S LYMPHOMA
     Dosage: FOR 7 DAYS?TOTAL OF 10 CYCLES RECEIVED BY THE TIME OF EVENT ONSET
     Route: 048
     Dates: start: 20151023, end: 20160716
  8. VINCRISTINE [Suspect]
     Active Substance: VINCRISTINE
     Indication: NON-HODGKIN^S LYMPHOMA
     Dosage: TOTAL OF 10 CYCLES RECEIVED BY THE TIME OF EVENT ONSET
     Route: 042
     Dates: start: 20151023, end: 20160712
  9. ETOPOSIDE. [Suspect]
     Active Substance: ETOPOSIDE
     Indication: NON-HODGKIN^S LYMPHOMA
     Dosage: TOTAL OF 10 CYCLES RECEIVED BY THE TIME OF EVENT ONSET
     Route: 042
     Dates: start: 20151023, end: 20160712
  10. ZOFRAN [Suspect]
     Active Substance: ONDANSETRON HYDROCHLORIDE
     Indication: NON-HODGKIN^S LYMPHOMA
     Dosage: TOTAL OF 10 CYCLES RECEIVED BY THE TIME OF EVENT ONSET
     Route: 042
     Dates: start: 20151023, end: 20160712
  11. SOLU-CORTEF [Suspect]
     Active Substance: HYDROCORTISONE SODIUM SUCCINATE
     Indication: NON-HODGKIN^S LYMPHOMA
     Dosage: TOTAL OF 10 CYCLES RECEIVED BY THE TIME OF EVENT ONSET
     Route: 042
     Dates: start: 20151023, end: 20160712
  12. ZOFRAN [Suspect]
     Active Substance: ONDANSETRON HYDROCHLORIDE
     Indication: NON-HODGKIN^S LYMPHOMA
     Dosage: BD ORALLY FOR 3 DAYS?TOTAL OF 4 CYCLES RECEIVED BY THE TIME OF EVENT ONSET
     Route: 048
     Dates: start: 20160310, end: 20160712
  13. CYCLOPHOSPHAMIDE. [Suspect]
     Active Substance: CYCLOPHOSPHAMIDE
     Indication: NON-HODGKIN^S LYMPHOMA
     Dosage: TOTAL OF 10 CYCLES RECEIVED BY THE TIME OF EVENT ONSET
     Route: 042
     Dates: start: 20151023, end: 20160712
  14. SPECTRAPAIN [Concomitant]
     Dosage: 2 TABLETS TDS PRN
     Route: 065
     Dates: start: 20160712

REACTIONS (6)
  - Arrhythmia [Fatal]
  - Asthenia [Unknown]
  - Non-Hodgkin^s lymphoma [Fatal]
  - Diarrhoea [Unknown]
  - Hypokalaemia [Fatal]
  - Retroviral infection [Fatal]
